FAERS Safety Report 10272480 (Version 1)
Quarter: 2014Q3

REPORT INFORMATION
  Report Type: Spontaneous
  Country: US (occurrence: US)
  Receive Date: 20140702
  Receipt Date: 20140702
  Transmission Date: 20150326
  Serious: No
  Sender: FDA-Public Use
  Company Number: US-TEVA-491418USA

PATIENT
  Sex: Female

DRUGS (1)
  1. COPAXONE [Suspect]
     Active Substance: GLATIRAMER ACETATE
     Indication: MULTIPLE SCLEROSIS
     Dates: start: 1993, end: 2011

REACTIONS (5)
  - Hyperhidrosis [Unknown]
  - Malaise [Unknown]
  - Adverse event [Unknown]
  - Swelling [Unknown]
  - Rash [Unknown]
